FAERS Safety Report 7765188-3 (Version None)
Quarter: 2011Q3

REPORT INFORMATION
  Report Type: 
  Country: None (occurrence: None)
  Receive Date: 20110921
  Receipt Date: 20110916
  Transmission Date: 20111222
  Serious: Yes (Hospitalization)
  Sender: FDA-Public Use
  Company Number: US-GLAXOSMITHKLINE-A0808532A

PATIENT
  Sex: Female

DRUGS (6)
  1. PRAVACHOL [Concomitant]
  2. AVANDIA [Suspect]
     Indication: DIABETES MELLITUS
     Dosage: 4MG TWICE PER DAY
     Route: 048
     Dates: start: 20020925, end: 20060101
  3. NORVASC [Concomitant]
  4. METOPROLOL TARTRATE [Concomitant]
  5. GLUCOTROL [Concomitant]
  6. AVAPRO [Concomitant]

REACTIONS (3)
  - MYOCARDIAL INFARCTION [None]
  - HYPERLIPIDAEMIA [None]
  - CORONARY ARTERY OCCLUSION [None]
